FAERS Safety Report 7447470-2 (Version None)
Quarter: 2011Q2

REPORT INFORMATION
  Report Type: 
  Country: None (occurrence: None)
  Receive Date: 20110420
  Receipt Date: 20110407
  Transmission Date: 20111010
  Serious: Yes (Other)
  Sender: FDA-Public Use
  Company Number: 2011SP015753

PATIENT
  Age: 37 Year
  Sex: Male

DRUGS (3)
  1. NITROGLYCERIN [Suspect]
     Indication: CORONARY ARTERY DISEASE
     Dosage: 40 MG, BID,
  2. METOPROLOL TARTRATE [Suspect]
     Indication: CORONARY ARTERY DISEASE
     Dosage: 50 MG, QD,
  3. ASPIRIN [Suspect]
     Indication: CORONARY ARTERY DISEASE
     Dosage: 300 MG QD,

REACTIONS (3)
  - HEADACHE [None]
  - VOMITING [None]
  - NAUSEA [None]
